FAERS Safety Report 7278659-3 (Version None)
Quarter: 2011Q1

REPORT INFORMATION
  Report Type: 
  Country: None (occurrence: None)
  Receive Date: 20110207
  Receipt Date: 20110203
  Transmission Date: 20110831
  Serious: No
  Sender: FDA-Public Use
  Company Number: US-PFIZER INC-2010178497

PATIENT
  Age: 67 Year
  Sex: Female
  Weight: 68.027 kg

DRUGS (2)
  1. SIMVASTATIN [Concomitant]
  2. ADVIL CONGESTION RELIEF [Suspect]
     Indication: NASOPHARYNGITIS
     Dosage: 1 TABLET, ONCE
     Route: 048
     Dates: start: 20101221, end: 20101221

REACTIONS (1)
  - DRUG INEFFECTIVE [None]
